FAERS Safety Report 5955838-6 (Version None)
Quarter: 2008Q4

REPORT INFORMATION
  Report Type: 
  Country: None (occurrence: None)
  Receive Date: 20081117
  Receipt Date: 20081106
  Transmission Date: 20090506
  Serious: Yes (Other)
  Sender: FDA-Public Use
  Company Number: US-PFIZER INC-2008094429

PATIENT
  Sex: Male

DRUGS (4)
  1. CHANTIX [Suspect]
     Indication: SMOKING CESSATION THERAPY
     Dates: start: 20080601, end: 20080901
  2. MOTRIN [Interacting]
     Indication: FALL
  3. VICODIN [Interacting]
     Indication: FALL
  4. FLEXERIL [Interacting]
     Indication: FALL

REACTIONS (9)
  - ABNORMAL BEHAVIOUR [None]
  - ANXIETY [None]
  - CATARACT [None]
  - CONFUSIONAL STATE [None]
  - DEPRESSION [None]
  - DRUG INTERACTION [None]
  - MOOD SWINGS [None]
  - NERVOUSNESS [None]
  - WEIGHT INCREASED [None]
